FAERS Safety Report 26101223 (Version 1)
Quarter: 2025Q4

REPORT INFORMATION
  Report Type: Spontaneous
  Country: CA (occurrence: CA)
  Receive Date: 20251128
  Receipt Date: 20251128
  Transmission Date: 20260118
  Serious: Yes (Other)
  Sender: INTERCEPT PHARMACEUTICALS
  Company Number: CA-ADVANZ PHARMA-202210006953

PATIENT
  Age: 39 Year
  Sex: Female

DRUGS (4)
  1. OCALIVA [Suspect]
     Active Substance: OBETICHOLIC ACID
     Indication: Primary biliary cholangitis
     Dosage: 5 MG, QD, OCALIVA
     Dates: start: 20171012
  2. OCALIVA [Suspect]
     Active Substance: OBETICHOLIC ACID
     Dosage: 10 MG, QD
  3. BEZAFIBRATE [Concomitant]
     Active Substance: BEZAFIBRATE
     Indication: Product used for unknown indication
     Dosage: UNK (NOT TOLERANT TO BEZAFIBRATE)
  4. URSO [Concomitant]
     Active Substance: URSODIOL
     Dosage: 1000 MG, QD (INADEQUATE RESPONSE TO UDCA MONOTHERAPY)
     Dates: start: 2013

REACTIONS (8)
  - Respiratory syncytial virus bronchiolitis [Not Recovered/Not Resolved]
  - Blood bilirubin abnormal [Unknown]
  - Cough [Unknown]
  - Illness [Unknown]
  - Blood alkaline phosphatase abnormal [Recovering/Resolving]
  - Alanine aminotransferase abnormal [Recovered/Resolved]
  - Gamma-glutamyltransferase abnormal [Unknown]
  - Product dose omission issue [Unknown]

NARRATIVE: CASE EVENT DATE: 20220629
